FAERS Safety Report 15640176 (Version 1)
Quarter: 2018Q4

REPORT INFORMATION
  Report Type: Spontaneous
  Country: BR (occurrence: BR)
  Receive Date: 20181120
  Receipt Date: 20181120
  Transmission Date: 20190205
  Serious: Yes (Hospitalization)
  Sender: FDA-Public Use
  Company Number: BR-BAYER-2018-211086

PATIENT
  Age: 42 Year
  Sex: Female

DRUGS (2)
  1. GYNERA [Suspect]
     Active Substance: ETHINYL ESTRADIOL\GESTODENE
     Indication: CONTRACEPTION
     Dosage: UNK
     Route: 048
     Dates: start: 1996
  2. YASMIN [Suspect]
     Active Substance: DROSPIRENONE\ETHINYL ESTRADIOL
     Dosage: UNK
     Route: 048

REACTIONS (4)
  - Ruptured cerebral aneurysm [None]
  - Pain [None]
  - Intracranial aneurysm [None]
  - Accidental use of placebo [None]

NARRATIVE: CASE EVENT DATE: 2016
